FAERS Safety Report 7301064-8 (Version None)
Quarter: 2011Q1

REPORT INFORMATION
  Report Type: 
  Country: None (occurrence: None)
  Receive Date: 20110218
  Receipt Date: 20110214
  Transmission Date: 20110831
  Serious: Yes (Hospitalization)
  Sender: FDA-Public Use
  Company Number: US-US-EMD SERONO, INC.-7042421

PATIENT
  Sex: Female

DRUGS (2)
  1. REBIF [Suspect]
     Indication: PRODUCT USED FOR UNKNOWN INDICATION
     Route: 058
     Dates: start: 20101001
  2. PROVIGIL [Concomitant]
     Indication: FATIGUE

REACTIONS (4)
  - INJECTION SITE HAEMATOMA [None]
  - DISEASE PROGRESSION [None]
  - INJECTION SITE REACTION [None]
  - ACNE [None]
